FAERS Safety Report 25461155 (Version 1)
Quarter: 2025Q2

REPORT INFORMATION
  Report Type: Spontaneous
  Country: IT (occurrence: IT)
  Receive Date: 20250620
  Receipt Date: 20250620
  Transmission Date: 20250717
  Serious: Yes (Other)
  Sender: SAMSUNG BIOEPIS
  Company Number: IT-SAMSUNG BIOEPIS-SB-2025-21028

PATIENT
  Sex: Female

DRUGS (1)
  1. ECULIZUMAB [Suspect]
     Active Substance: ECULIZUMAB
     Indication: Myasthenia gravis

REACTIONS (3)
  - Myasthenia gravis [Unknown]
  - Drug ineffective for unapproved indication [Unknown]
  - Off label use [Unknown]
